FAERS Safety Report 6674577-X (Version None)
Quarter: 2010Q2

REPORT INFORMATION
  Report Type: 
  Country: None (occurrence: None)
  Receive Date: 20100409
  Receipt Date: 20100329
  Transmission Date: 20101027
  Serious: Yes (Hospitalization)
  Sender: FDA-Public Use
  Company Number: JP-PFIZER INC-2010028644

PATIENT
  Age: 40 Year
  Sex: Female
  Weight: 40.9 kg

DRUGS (12)
  1. RIFABUTIN [Suspect]
     Indication: TUBERCULOSIS
     Dosage: 150 MG, 1X/DAY
     Route: 048
     Dates: start: 20090207, end: 20090416
  2. RIFABUTIN [Suspect]
     Dosage: 150 MG, 1X/DAY
     Route: 048
     Dates: start: 20090502, end: 20090723
  3. RIFABUTIN [Suspect]
     Dosage: 150 MG, 1X/DAY
     Route: 048
     Dates: start: 20090727, end: 20091229
  4. RIFABUTIN [Suspect]
     Dosage: 150 MG, 1X/DAY
     Route: 048
     Dates: start: 20100105, end: 20100210
  5. ISCOTIN [Concomitant]
     Indication: INFECTION
     Dosage: UNK
     Route: 048
     Dates: start: 20090202
  6. ISCOTIN [Concomitant]
     Dosage: UNK
     Route: 042
     Dates: end: 20090421
  7. ISCOTIN [Concomitant]
     Route: 048
  8. ISCOTIN [Concomitant]
     Dosage: UNK
     Route: 042
     Dates: end: 20090701
  9. ISCOTIN [Concomitant]
     Dosage: UNK
     Route: 048
     Dates: start: 20100103
  10. ESANBUTOL [Concomitant]
     Indication: INFECTION
     Dosage: UNK
     Route: 048
     Dates: start: 20090202
  11. ESANBUTOL [Concomitant]
     Dosage: UNK
     Dates: start: 20090428
  12. PYRAMIDE [Concomitant]
     Indication: INFECTION
     Route: 048
     Dates: start: 20090202, end: 20090414

REACTIONS (1)
  - INTESTINAL OBSTRUCTION [None]
